FAERS Safety Report 10344188 (Version 1)
Quarter: 2014Q3

REPORT INFORMATION
  Report Type: Spontaneous
  Country: US (occurrence: None)
  Receive Date: 20140724
  Receipt Date: 20140724
  Transmission Date: 20150326
  Serious: Yes (Hospitalization, Disabling)
  Sender: FDA-Public Use
  Company Number: None

PATIENT
  Age: 79 Year
  Sex: Female
  Weight: 58.06 kg

DRUGS (2)
  1. KENALOG [Suspect]
     Active Substance: TRIAMCINOLONE ACETONIDE
     Indication: SPINAL COLUMN STENOSIS
  2. SOLU-MEDROL [Suspect]
     Active Substance: METHYLPREDNISOLONE SODIUM SUCCINATE

REACTIONS (11)
  - Postmenopausal haemorrhage [None]
  - Eructation [None]
  - Gastrooesophageal reflux disease [None]
  - Hiatus hernia [None]
  - Nausea [None]
  - Constipation [None]
  - Decreased appetite [None]
  - Candida infection [None]
  - Herpes zoster [None]
  - Hot flush [None]
  - Inadequate analgesia [None]
